FAERS Safety Report 4285425-X (Version None)
Quarter: 2004Q1

REPORT INFORMATION
  Report Type: 
  Country: None (occurrence: None)
  Receive Date: 20040202
  Receipt Date: 20040202
  Transmission Date: 20041129
  Serious: Yes (Other)
  Sender: FDA-Public Use
  Company Number: None

PATIENT
  Sex: Male

DRUGS (4)
  1. METFORMIN HCL [Suspect]
     Indication: DIABETES MELLITUS
     Dosage: CURRENTLY ONE BID
     Dates: start: 20031114
  2. ALTACE [Concomitant]
  3. ATENOLOL [Concomitant]
  4. NIASPAN [Concomitant]

REACTIONS (2)
  - BLOOD GLUCOSE ABNORMAL [None]
  - PHARMACEUTICAL PRODUCT COMPLAINT [None]
